FAERS Safety Report 13622445 (Version 1)
Quarter: 2017Q2

REPORT INFORMATION
  Report Type: Spontaneous
  Country: US (occurrence: US)
  Receive Date: 20170607
  Receipt Date: 20170607
  Transmission Date: 20170830
  Serious: No
  Sender: FDA-Public Use
  Company Number: US-ROCHE-1853342

PATIENT
  Sex: Female

DRUGS (1)
  1. XELODA [Suspect]
     Active Substance: CAPECITABINE
     Indication: NEOPLASM MALIGNANT
     Dosage: TAKE DAYS 1-14 IN 28 DAY CYCLE
     Route: 048
     Dates: start: 20160825

REACTIONS (2)
  - No adverse event [Unknown]
  - Drug ineffective [Unknown]
